FAERS Safety Report 7406268-1 (Version None)
Quarter: 2011Q2

REPORT INFORMATION
  Report Type: 
  Country: None (occurrence: None)
  Receive Date: 20110401
  Receipt Date: 20110325
  Transmission Date: 20111010
  Serious: Yes (Death)
  Sender: FDA-Public Use
  Company Number: 2011SP013981

PATIENT

DRUGS (1)
  1. ZISPIN (MIRTAZAPINE /01293201/ [Suspect]
     Indication: PRODUCT USED FOR UNKNOWN INDICATION

REACTIONS (5)
  - MULTI-ORGAN DISORDER [None]
  - THROAT CANCER [None]
  - PRODUCT MEASURED POTENCY ISSUE [None]
  - BONE DISORDER [None]
  - UNEVALUABLE EVENT [None]
